FAERS Safety Report 8392010-7 (Version None)
Quarter: 2012Q2

REPORT INFORMATION
  Report Type: 
  Country: None (occurrence: None)
  Receive Date: 20120529
  Receipt Date: 20120517
  Transmission Date: 20120825
  Serious: Yes (Other)
  Sender: FDA-Public Use
  Company Number: US-JNJFOC-20120400366

PATIENT
  Sex: Female
  Weight: 64.86 kg

DRUGS (4)
  1. DURAGESIC-100 [Suspect]
     Indication: MUSCLE DISORDER
     Route: 062
  2. BUMEX [Concomitant]
     Indication: FLUID RETENTION
     Route: 065
  3. DURAGESIC-100 [Suspect]
     Indication: PRODUCT USED FOR UNKNOWN INDICATION
     Route: 062
     Dates: start: 19970101
  4. SYNTHROID [Concomitant]
     Indication: THYROID DISORDER
     Route: 048

REACTIONS (2)
  - RHEUMATOID ARTHRITIS [None]
  - PRODUCT QUALITY ISSUE [None]
